APPROVED DRUG PRODUCT: DEXACIDIN
Active Ingredient: DEXAMETHASONE; NEOMYCIN SULFATE; POLYMYXIN B SULFATE
Strength: 0.1%;EQ 3.5MG BASE/ML;10,000 UNITS/ML
Dosage Form/Route: SUSPENSION/DROPS;OPHTHALMIC
Application: A062544 | Product #001
Applicant: NOVARTIS PHARMACEUTICALS CORP
Approved: Oct 29, 1984 | RLD: No | RS: No | Type: DISCN